FAERS Safety Report 20701981 (Version 2)
Quarter: 2022Q2

REPORT INFORMATION
  Report Type: Report from Study
  Country: CA (occurrence: CA)
  Receive Date: 20220412
  Receipt Date: 20220516
  Transmission Date: 20220721
  Serious: Yes (Death, Hospitalization, Other)
  Sender: FDA-Public Use
  Company Number: CA-GILEAD-2022-0577227

PATIENT
  Age: 42 Year
  Sex: Female
  Weight: 90 kg

DRUGS (6)
  1. SACITUZUMAB GOVITECAN [Suspect]
     Active Substance: SACITUZUMAB GOVITECAN
     Indication: Triple negative breast cancer
     Dosage: UNK
     Route: 042
     Dates: start: 20220124, end: 20220131
  2. HYDROMORPHONE [Concomitant]
     Active Substance: HYDROMORPHONE
  3. TRAZODONE [Concomitant]
     Active Substance: TRAZODONE HYDROCHLORIDE
  4. RIVAROXABAN [Concomitant]
     Active Substance: RIVAROXABAN
  5. DULOXETINE [Concomitant]
     Active Substance: DULOXETINE
  6. ARIPIPRAZOLE [Concomitant]
     Active Substance: ARIPIPRAZOLE

REACTIONS (4)
  - Septic shock [Fatal]
  - Colitis ischaemic [Fatal]
  - Neutropenia [Fatal]
  - Disseminated intravascular coagulation [Unknown]

NARRATIVE: CASE EVENT DATE: 20220203
